FAERS Safety Report 23636617 (Version 1)
Quarter: 2024Q1

REPORT INFORMATION
  Report Type: Spontaneous
  Country: US (occurrence: US)
  Receive Date: 20240315
  Receipt Date: 20240315
  Transmission Date: 20240410
  Serious: Yes (Death, Other)
  Sender: FDA-Public Use
  Company Number: US-AMGEN-USASP2024049004

PATIENT
  Age: 17 Year

DRUGS (6)
  1. RITUXIMAB [Suspect]
     Active Substance: RITUXIMAB
     Indication: Autoimmune haemolytic anaemia
     Dosage: UNK
     Route: 065
  2. RITUXIMAB [Suspect]
     Active Substance: RITUXIMAB
     Indication: Acute lymphocytic leukaemia
  3. FLUDARABINE [Concomitant]
     Active Substance: FLUDARABINE PHOSPHATE
     Indication: Acute lymphocytic leukaemia
     Dosage: UNK
     Route: 065
  4. THIOTEPA [Concomitant]
     Active Substance: THIOTEPA
     Indication: Acute lymphocytic leukaemia
  5. LAPINE T-LYMPHOCYTE IMMUNE GLOBULIN [Concomitant]
     Active Substance: LAPINE T-LYMPHOCYTE IMMUNE GLOBULIN
     Indication: Acute lymphocytic leukaemia
     Dosage: UNK
     Route: 065
  6. HUMAN IMMUNOGLOBULIN G [Concomitant]
     Active Substance: HUMAN IMMUNOGLOBULIN G
     Indication: Autoimmune haemolytic anaemia
     Dosage: UNK
     Route: 042

REACTIONS (7)
  - COVID-19 [Fatal]
  - Respiratory failure [Fatal]
  - Graft versus host disease in skin [Unknown]
  - Autoimmune haemolytic anaemia [Unknown]
  - BK virus infection [Unknown]
  - Off label use [Unknown]
  - Cytomegalovirus infection [Unknown]
